FAERS Safety Report 11878298 (Version 1)
Quarter: 2015Q4

REPORT INFORMATION
  Report Type: Spontaneous
  Country: US (occurrence: None)
  Receive Date: 20151229
  Receipt Date: 20151229
  Transmission Date: 20160305
  Serious: Yes (Other)
  Sender: FDA-Public Use
  Company Number: None

PATIENT
  Age: 42 Year
  Sex: Male
  Weight: 82.56 kg

DRUGS (1)
  1. MOTRIN [Suspect]
     Active Substance: IBUPROFEN
     Indication: CONTUSION
     Dosage: 1 PILL  AS NEEDED  TAKEN BY MOUTH
     Route: 048

REACTIONS (3)
  - Ear haemorrhage [None]
  - Feeling hot [None]
  - Erythema [None]

NARRATIVE: CASE EVENT DATE: 20151227
